FAERS Safety Report 7622248-5 (Version None)
Quarter: 2011Q3

REPORT INFORMATION
  Report Type: 
  Country: None (occurrence: None)
  Receive Date: 20110720
  Receipt Date: 20110718
  Transmission Date: 20111222
  Serious: Yes (Other)
  Sender: FDA-Public Use
  Company Number: US-BRISTOL-MYERS SQUIBB COMPANY-15908155

PATIENT
  Age: 62 Year
  Sex: Male
  Weight: 92 kg

DRUGS (3)
  1. VIMPAT [Concomitant]
  2. COUMADIN [Suspect]
     Dosage: WARFARIN DOSE FROM 7.5MG TO 15MG.
     Dates: start: 20080501
  3. DILANTIN [Concomitant]

REACTIONS (4)
  - INTERNATIONAL NORMALISED RATIO DECREASED [None]
  - BLOOD PRESSURE INCREASED [None]
  - JOINT CONTRACTURE [None]
  - HAND FRACTURE [None]
